FAERS Safety Report 6550838-X (Version None)
Quarter: 2010Q1

REPORT INFORMATION
  Report Type: 
  Country: None (occurrence: None)
  Receive Date: 20100125
  Receipt Date: 20100122
  Transmission Date: 20100710
  Serious: Yes (Life-Threatening, Hospitalization)
  Sender: FDA-Public Use
  Company Number: FR-SANOFI-AVENTIS-2010SA004008

PATIENT
  Age: 63 Year
  Sex: Male

DRUGS (14)
  1. AMAREL [Suspect]
     Route: 048
     Dates: end: 20091114
  2. LANZOR [Suspect]
     Route: 048
     Dates: end: 20091114
  3. ALDALIX [Suspect]
     Route: 048
     Dates: end: 20091114
  4. NEXEN [Suspect]
     Route: 048
     Dates: end: 20091114
  5. METFORMIN HCL [Suspect]
     Route: 048
     Dates: end: 20091114
  6. CRESTOR [Suspect]
     Route: 048
     Dates: end: 20091114
  7. ATENOLOL [Suspect]
     Route: 048
     Dates: end: 20091114
  8. LERCAN [Concomitant]
  9. PLAVIX [Concomitant]
     Route: 048
  10. KARDEGIC [Concomitant]
     Route: 048
  11. HEXAQUINE [Concomitant]
  12. LANTUS [Concomitant]
     Route: 058
  13. APIDRA [Concomitant]
     Route: 058
  14. CORDARONE [Concomitant]

REACTIONS (4)
  - BRADYCARDIA [None]
  - HYPERKALAEMIA [None]
  - LACTIC ACIDOSIS [None]
  - RENAL FAILURE ACUTE [None]
